FAERS Safety Report 21933334 (Version 2)
Quarter: 2023Q1

REPORT INFORMATION
  Report Type: Spontaneous
  Country: JP (occurrence: JP)
  Receive Date: 20230131
  Receipt Date: 20230228
  Transmission Date: 20230418
  Serious: Yes (Hospitalization, Other)
  Sender: FDA-Public Use
  Company Number: JP-ASTELLAS-2022JP018766

PATIENT
  Age: 83 Year
  Sex: Male

DRUGS (8)
  1. MIRABEGRON [Suspect]
     Active Substance: MIRABEGRON
     Indication: Hypertonic bladder
     Dosage: 25 MG, ONCE DAILY, AFTER DINNER
     Route: 048
     Dates: start: 20210713, end: 20210727
  2. SILODOSIN [Suspect]
     Active Substance: SILODOSIN
     Indication: Product used for unknown indication
     Dosage: 4 MG, TWICE DAILY, AFTER BREAKFAST AND DINNER
     Route: 048
     Dates: start: 20210713
  3. FLAVOXATE HYDROCHLORIDE [Suspect]
     Active Substance: FLAVOXATE HYDROCHLORIDE
     Indication: Product used for unknown indication
     Dosage: 200 MG, TWICE DAILY,AFTER BREAKFAST AND DINNER
     Route: 048
     Dates: start: 20210713
  4. VIBEGRON [Suspect]
     Active Substance: VIBEGRON
     Indication: Hypertonic bladder
     Dosage: 50 MG, ONCE DAILY, AFTER DINNER
     Route: 048
     Dates: start: 20210727, end: 20210811
  5. ETIZOLAM [Concomitant]
     Active Substance: ETIZOLAM
     Indication: Product used for unknown indication
     Dosage: 0.5 MG, ONCE DAILY,BEFORE BEDTIME
     Route: 048
     Dates: start: 20210713
  6. METHYLMETHIONINE SULFONIUM CHLORIDE [Concomitant]
     Active Substance: METHYLMETHIONINE SULFONIUM CHLORIDE
     Indication: Product used for unknown indication
     Dosage: 1 G, THRICE DAILY, AFTER EACH MEAL
     Route: 048
     Dates: start: 20210713
  7. SIMVASTATIN [Concomitant]
     Active Substance: SIMVASTATIN
     Indication: Hyperlipidaemia
     Dosage: 55 MG, ONCE DAILY,AFTER BREAKFAST
     Route: 048
     Dates: start: 20210713
  8. MAGNESIUM OXIDE [Concomitant]
     Active Substance: MAGNESIUM OXIDE
     Indication: Constipation
     Dosage: 500 MG, THRICE DAILY,AFTER EVERY MEAL
     Route: 048

REACTIONS (1)
  - Drug-induced liver injury [Recovered/Resolved]

NARRATIVE: CASE EVENT DATE: 20210811
